FAERS Safety Report 10151969 (Version 1)
Quarter: 2014Q2

REPORT INFORMATION
  Report Type: Report from Study
  Country: US (occurrence: US)
  Receive Date: 20140505
  Receipt Date: 20140505
  Transmission Date: 20141212
  Serious: Yes (Hospitalization)
  Sender: FDA-Public Use
  Company Number: US-JNJFOC-20140416047

PATIENT
  Age: 64 Year
  Sex: Female
  Weight: 95.26 kg

DRUGS (1)
  1. USTEKINUMAB [Suspect]
     Indication: PSORIASIS
     Route: 058
     Dates: start: 201111, end: 201304

REACTIONS (2)
  - Renal failure acute [Recovered/Resolved]
  - Bacterial pyelonephritis [Recovered/Resolved]
